FAERS Safety Report 18363865 (Version 1)
Quarter: 2020Q4

REPORT INFORMATION
  Report Type: Report from Study
  Country: GB (occurrence: GB)
  Receive Date: 20201009
  Receipt Date: 20201009
  Transmission Date: 20210114
  Serious: Yes (Other)
  Sender: FDA-Public Use
  Company Number: GB-JNJFOC-20201001604

PATIENT
  Age: 78 Year
  Sex: Male
  Weight: 76.15 kg

DRUGS (8)
  1. TAMSULOSIN HYDROCHLORIDE. [Concomitant]
     Active Substance: TAMSULOSIN HYDROCHLORIDE
     Dates: start: 20200922
  2. STELARA [Suspect]
     Active Substance: USTEKINUMAB
     Indication: PSORIASIS
     Route: 058
     Dates: start: 20170509
  3. ROSUVASTATIN. [Concomitant]
     Active Substance: ROSUVASTATIN
     Dates: start: 20180315
  4. ASPIRIN                            /00002701/ [Concomitant]
     Active Substance: ASPIRIN
     Dates: start: 20100715
  5. BETNOVATE [Concomitant]
     Active Substance: BETAMETHASONE
     Dates: start: 20190926
  6. TAMSULOSIN HYDROCHLORIDE. [Concomitant]
     Active Substance: TAMSULOSIN HYDROCHLORIDE
     Dates: start: 20200817, end: 20200831
  7. RAMIPRIL. [Concomitant]
     Active Substance: RAMIPRIL
     Dates: start: 20100715
  8. TACROLIMUS. [Concomitant]
     Active Substance: TACROLIMUS
     Dates: start: 20190926

REACTIONS (1)
  - Prostate cancer [Not Recovered/Not Resolved]

NARRATIVE: CASE EVENT DATE: 20200227
